FAERS Safety Report 7806222-1 (Version None)
Quarter: 2011Q4

REPORT INFORMATION
  Report Type: 
  Country: None (occurrence: None)
  Receive Date: 20111011
  Receipt Date: 20110928
  Transmission Date: 20120403
  Serious: Yes (Other)
  Sender: FDA-Public Use
  Company Number: JP-PFIZER INC-2011240116

PATIENT
  Age: 77 Year
  Sex: Male

DRUGS (7)
  1. EPLERENONE [Concomitant]
  2. OPALMON [Concomitant]
  3. CARVEDILOL [Concomitant]
  4. CLINORIL [Concomitant]
  5. LIPITOR [Suspect]
     Dosage: 5 MG, 1X/DAY
     Route: 048
  6. PLAVIX [Concomitant]
  7. ALDOMET [Concomitant]

REACTIONS (2)
  - MUSCULAR WEAKNESS [None]
  - ABASIA [None]
